FAERS Safety Report 8063661-4 (Version None)
Quarter: 2012Q1

REPORT INFORMATION
  Report Type: 
  Country: None (occurrence: None)
  Receive Date: 20120123
  Receipt Date: 20111104
  Transmission Date: 20120608
  Serious: Yes (Hospitalization, Other)
  Sender: FDA-Public Use
  Company Number: GB-GLAXOSMITHKLINE-B0760789A

PATIENT
  Sex: Male
  Weight: 87.1 kg

DRUGS (4)
  1. ACETAMINOPHEN [Concomitant]
  2. ARZERRA [Suspect]
     Indication: CHRONIC LYMPHOCYTIC LEUKAEMIA
     Route: 042
     Dates: start: 20110125
  3. CHLORPHENIRAMINE MALEATE [Concomitant]
  4. DEXAMETHASONE TAB [Concomitant]

REACTIONS (3)
  - PRURITUS [None]
  - INFUSION RELATED REACTION [None]
  - FLUSHING [None]
